FAERS Safety Report 6391641-3 (Version None)
Quarter: 2009Q4

REPORT INFORMATION
  Report Type: 
  Country: None (occurrence: None)
  Receive Date: 20091007
  Receipt Date: 20090824
  Transmission Date: 20100525
  Serious: Yes (Hospitalization)
  Sender: FDA-Public Use
  Company Number: BR-ROCHE-651922

PATIENT
  Age: 34 Year
  Sex: Female

DRUGS (3)
  1. ALL-TRANS-RETINOIC ACID [Suspect]
     Route: 065
  2. ALL-TRANS-RETINOIC ACID [Suspect]
     Dosage: DOSE: HALF OF INITIAL DOSE
     Route: 065
  3. DAUNORUBICIN HCL [Suspect]
     Route: 065

REACTIONS (3)
  - ACUTE RESPIRATORY FAILURE [None]
  - CONJUNCTIVAL HAEMORRHAGE [None]
  - RETINOIC ACID SYNDROME [None]
